FAERS Safety Report 6727516-7 (Version None)
Quarter: 2010Q2

REPORT INFORMATION
  Report Type: 
  Country: None (occurrence: None)
  Receive Date: 20100517
  Receipt Date: 20100507
  Transmission Date: 20101027
  Serious: Yes (Other)
  Sender: FDA-Public Use
  Company Number: ES-ASTRAZENECA-2010SE21352

PATIENT
  Age: 4890 Day
  Sex: Male
  Weight: 77.8 kg

DRUGS (1)
  1. SEROQUEL [Suspect]
     Indication: ABNORMAL BEHAVIOUR
     Route: 048

REACTIONS (1)
  - ATRIOVENTRICULAR BLOCK [None]
